FAERS Safety Report 20382275 (Version 7)
Quarter: 2022Q4

REPORT INFORMATION
  Report Type: Report from Study
  Country: CA (occurrence: CA)
  Receive Date: 20220127
  Receipt Date: 20221101
  Transmission Date: 20230113
  Serious: Yes (Other)
  Sender: FDA-Public Use
  Company Number: CA-BAUSCH-BL-2021-036173

PATIENT
  Sex: Female
  Weight: 74.91 kg

DRUGS (15)
  1. CONTRAVE [Suspect]
     Active Substance: BUPROPION HYDROCHLORIDE\NALTREXONE HYDROCHLORIDE
     Indication: Weight control
     Dosage: 90/8MG; 1 TAB EVERY MORNING
     Route: 048
     Dates: end: 202110
  2. CONTRAVE [Suspect]
     Active Substance: BUPROPION HYDROCHLORIDE\NALTREXONE HYDROCHLORIDE
     Dosage: 90/8MG; 1 TAB EVERY MORNING
     Route: 048
     Dates: start: 20211105, end: 20211111
  3. CONTRAVE [Suspect]
     Active Substance: BUPROPION HYDROCHLORIDE\NALTREXONE HYDROCHLORIDE
     Dosage: 90/8MG; 1 TAB Q AM , 1 TAB Q PM
     Route: 048
     Dates: start: 20211112, end: 20211114
  4. CONTRAVE [Suspect]
     Active Substance: BUPROPION HYDROCHLORIDE\NALTREXONE HYDROCHLORIDE
     Dosage: 90/8MG; 1 TAB Q AM
     Route: 048
     Dates: start: 20211115, end: 20211122
  5. CONTRAVE [Suspect]
     Active Substance: BUPROPION HYDROCHLORIDE\NALTREXONE HYDROCHLORIDE
     Dosage: 90/8MG; 1 TAB Q AM, 1 TAB Q PM
     Route: 048
     Dates: start: 20211123
  6. CONTRAVE [Suspect]
     Active Substance: BUPROPION HYDROCHLORIDE\NALTREXONE HYDROCHLORIDE
     Dosage: 90/8MG; 1 TAB Q AM (FIFTH ATTEMPT)
     Route: 048
     Dates: start: 20220106, end: 202201
  7. CONTRAVE [Suspect]
     Active Substance: BUPROPION HYDROCHLORIDE\NALTREXONE HYDROCHLORIDE
     Dosage: 90/8MG; 2 TAB Q AM,2 TAB Q PM
     Route: 048
     Dates: start: 20220127, end: 202201
  8. CONTRAVE [Suspect]
     Active Substance: BUPROPION HYDROCHLORIDE\NALTREXONE HYDROCHLORIDE
     Dosage: 90/8MG;
     Route: 048
     Dates: start: 2022, end: 202202
  9. GRAVOL [Suspect]
     Active Substance: DIMENHYDRINATE
     Indication: Nausea
     Dosage: UNK
     Route: 065
  10. THIAMINE [Concomitant]
     Active Substance: THIAMINE
     Indication: Product used for unknown indication
     Dosage: VITAMIN B1
     Dates: start: 202110
  11. ELAVIL [Concomitant]
     Active Substance: AMITRIPTYLINE HYDROCHLORIDE
     Indication: Migraine
     Dosage: 25 MG, 1 IN 1 D
     Route: 048
  12. MELATONIN [Concomitant]
     Active Substance: MELATONIN
     Indication: Insomnia
     Dosage: 6 MG, 1 IN 24 HR
     Route: 048
     Dates: start: 202110
  13. MAGNESIUM [Concomitant]
     Active Substance: MAGNESIUM
     Indication: Insomnia
     Dosage: 250 MG, 1 IN 24 HR
     Route: 048
     Dates: start: 202110
  14. NUVARING [Concomitant]
     Active Substance: ETHINYL ESTRADIOL\ETONOGESTREL
     Indication: Contraception
     Dosage: STARTED 10 PLUS YEARS BACK; RING (SLOW- RELEASE)
  15. VITAMIN B1 [Concomitant]
     Active Substance: THIAMINE HYDROCHLORIDE
     Indication: Product used for unknown indication
     Dosage: UNK

REACTIONS (25)
  - Anxiety [Recovered/Resolved]
  - Abnormal loss of weight [Unknown]
  - Hunger [Unknown]
  - Cortisol increased [Unknown]
  - COVID-19 [Recovered/Resolved]
  - Ovarian enlargement [Not Recovered/Not Resolved]
  - Hydrometra [Not Recovered/Not Resolved]
  - Chest wall mass [Not Recovered/Not Resolved]
  - Decreased appetite [Unknown]
  - Nasal congestion [Recovered/Resolved]
  - Influenza [Not Recovered/Not Resolved]
  - Stress [Unknown]
  - Tremor [Recovered/Resolved]
  - Nausea [Recovered/Resolved]
  - Dry mouth [Recovered/Resolved]
  - Diarrhoea [Recovered/Resolved]
  - Fatigue [Not Recovered/Not Resolved]
  - Insomnia [Not Recovered/Not Resolved]
  - Constipation [Not Recovered/Not Resolved]
  - Headache [Recovered/Resolved]
  - Heart rate increased [Unknown]
  - Therapy interrupted [Unknown]
  - Product prescribing error [Unknown]
  - Inappropriate schedule of product administration [Unknown]
  - Patient dissatisfaction with treatment [Unknown]

NARRATIVE: CASE EVENT DATE: 20210101
